FAERS Safety Report 8879708 (Version 1)
Quarter: 2012Q4

REPORT INFORMATION
  Report Type: 
  Country: HU (occurrence: HU)
  Receive Date: 20121101
  Receipt Date: 20121101
  Transmission Date: 20130627
  Serious: Yes (Other)
  Sender: FDA-Public Use
  Company Number: HU-AMGEN-HUNSP2012068784

PATIENT
  Age: 58 Year
  Sex: Female

DRUGS (1)
  1. PROLIA [Suspect]
     Indication: PRODUCT USED FOR UNKNOWN INDICATION
     Dosage: 60 mg, q6mo
     Route: 058
     Dates: start: 20121017

REACTIONS (7)
  - Hypocalcaemia [Unknown]
  - Loss of consciousness [Unknown]
  - Cold sweat [Unknown]
  - Visual impairment [Unknown]
  - Malaise [Unknown]
  - Spinal compression fracture [Unknown]
  - Blood creatine phosphokinase increased [Unknown]
